FAERS Safety Report 12465482 (Version 1)
Quarter: 2016Q2

REPORT INFORMATION
  Report Type: Spontaneous
  Country: US (occurrence: US)
  Receive Date: 20160614
  Receipt Date: 20160614
  Transmission Date: 20160815
  Serious: No
  Sender: FDA-Public Use
  Company Number: US-MAYNE PHARMA-2016MYN000221

PATIENT
  Sex: Female

DRUGS (1)
  1. METHAMPHETAMINE HYDROCHLORIDE. [Suspect]
     Active Substance: METHAMPHETAMINE HYDROCHLORIDE
     Indication: PRODUCT USED FOR UNKNOWN INDICATION

REACTIONS (5)
  - Depression suicidal [Unknown]
  - Social avoidant behaviour [Unknown]
  - Drug ineffective [Unknown]
  - Malaise [Unknown]
  - Anxiety [Unknown]

NARRATIVE: CASE EVENT DATE: 201512
